FAERS Safety Report 4750491-1 (Version None)
Quarter: 2005Q3

REPORT INFORMATION
  Report Type: 
  Country: None (occurrence: None)
  Receive Date: 20050823
  Receipt Date: 20050815
  Transmission Date: 20060218
  Serious: Yes (Congenital Anomaly)
  Sender: FDA-Public Use
  Company Number: GB-GLAXOSMITHKLINE-B0391109A

PATIENT
  Sex: Female
  Weight: 3.1 kg

DRUGS (2)
  1. COMBIVIR [Suspect]
     Dosage: 900MG PER DAY
     Dates: start: 20050606
  2. KALETRA [Suspect]
     Dosage: 6CAP PER DAY
     Dates: start: 20050606

REACTIONS (2)
  - DRUG EXPOSURE DURING PREGNANCY [None]
  - VENTRICULAR SEPTAL DEFECT [None]
